FAERS Safety Report 7771845-5 (Version None)
Quarter: 2011Q3

REPORT INFORMATION
  Report Type: 
  Country: None (occurrence: None)
  Receive Date: 20110922
  Receipt Date: 20100915
  Transmission Date: 20111222
  Serious: No
  Sender: FDA-Public Use
  Company Number: US-ASTRAZENECA-2009UW02013

PATIENT
  Age: 50 Year
  Sex: Male
  Weight: 105.2 kg

DRUGS (5)
  1. SEROQUEL [Suspect]
     Indication: SLEEP DISORDER
     Route: 048
     Dates: start: 19920101
  2. ABILIFY [Concomitant]
     Dates: start: 20040101
  3. SEROQUEL [Suspect]
     Dosage: 25-100MG
     Route: 048
     Dates: start: 19990601, end: 20070101
  4. SEROQUEL [Suspect]
     Indication: SCHIZOPHRENIA
     Route: 048
     Dates: start: 19920101
  5. SEROQUEL [Suspect]
     Dosage: 25-100MG
     Route: 048
     Dates: start: 19990601, end: 20070101

REACTIONS (5)
  - TYPE 2 DIABETES MELLITUS [None]
  - HYPERLIPIDAEMIA [None]
  - BLOOD CHOLESTEROL INCREASED [None]
  - OBESITY [None]
  - NECK INJURY [None]
